FAERS Safety Report 15614404 (Version 1)
Quarter: 2018Q4

REPORT INFORMATION
  Report Type: Report from Study
  Country: US (occurrence: US)
  Receive Date: 20181113
  Receipt Date: 20181113
  Transmission Date: 20190205
  Serious: Yes (Hospitalization, Other)
  Sender: FDA-Public Use
  Company Number: US-GILEAD-2018-0373511

PATIENT
  Age: 9 Year
  Sex: Male

DRUGS (2)
  1. AQUADEKS PEDIATRIC LIQUID [Concomitant]
     Active Substance: MINERALS\VITAMINS
  2. AZTREONAM LYSINE [Suspect]
     Active Substance: AZTREONAM LYSINE
     Indication: CYSTIC FIBROSIS
     Dosage: 1 ML VIA NEBULIZER TID X28, OFF 28
     Route: 065
     Dates: start: 20151113

REACTIONS (1)
  - Cystic fibrosis [Unknown]
